FAERS Safety Report 14443847 (Version 1)
Quarter: 2018Q1

REPORT INFORMATION
  Report Type: Spontaneous
  Country: US (occurrence: US)
  Receive Date: 20180125
  Receipt Date: 20180125
  Transmission Date: 20180509
  Serious: Yes (Hospitalization)
  Sender: FDA-Public Use
  Company Number: None

PATIENT
  Age: 59 Year
  Sex: Male
  Weight: 94.3 kg

DRUGS (8)
  1. CYTARABINE. [Suspect]
     Active Substance: CYTARABINE
     Dates: end: 20180113
  2. HYDROCORTISONE. [Suspect]
     Active Substance: HYDROCORTISONE
     Dates: end: 20180110
  3. CYCLOPHOSPHAMIDE. [Suspect]
     Active Substance: CYCLOPHOSPHAMIDE
     Dates: end: 20180103
  4. MERCAPTOPURINE. [Concomitant]
     Active Substance: MERCAPTOPURINE
     Dates: end: 20180117
  5. DEXAMETHASONE. [Suspect]
     Active Substance: DEXAMETHASONE
     Dates: end: 20171130
  6. DAUNORUBICIN [Suspect]
     Active Substance: DAUNORUBICIN
     Dates: end: 20171215
  7. METHOTREXATE. [Suspect]
     Active Substance: METHOTREXATE
     Dates: end: 20180117
  8. VINCRISTINE SULFATE. [Suspect]
     Active Substance: VINCRISTINE SULFATE
     Dates: end: 20171215

REACTIONS (7)
  - Musculoskeletal pain [None]
  - Pancytopenia [None]
  - Spinal cord haematoma [None]
  - Back pain [None]
  - Vertebral column mass [None]
  - Dizziness [None]
  - Neck pain [None]

NARRATIVE: CASE EVENT DATE: 20180117
